FAERS Safety Report 4497731-4 (Version None)
Quarter: 2004Q4

REPORT INFORMATION
  Report Type: 
  Country: None (occurrence: None)
  Receive Date: 20041104
  Receipt Date: 20041027
  Transmission Date: 20050328
  Serious: Yes (Death, Life-Threatening, Hospitalization)
  Sender: FDA-Public Use
  Company Number: ESWYE962811AUG04

PATIENT
  Age: 68 Year
  Sex: Male

DRUGS (7)
  1. RAPAMUNE [Suspect]
     Indication: RENAL TRANSPLANT
     Dosage: SEE IMAGE
     Route: 048
     Dates: start: 20011201, end: 20040805
  2. RAPAMUNE [Suspect]
     Indication: RENAL TRANSPLANT
     Dosage: SEE IMAGE
     Route: 048
     Dates: start: 20040806, end: 20040811
  3. IMIPENEM (IMIPENEM) [Concomitant]
  4. MYCOPHENOLATE MOFETIL (MYCOPHENOLATE MOFETIL) [Concomitant]
  5. PREDNISONE [Concomitant]
  6. BETA BLOCKING AGENTS (BETA BLOCKING AGENTS) [Concomitant]
  7. TAZOCEL (PIPERACILLIN/TAZOBACTAM) [Concomitant]

REACTIONS (10)
  - BRAIN DEATH [None]
  - CARDIO-RESPIRATORY ARREST [None]
  - CATHETER RELATED INFECTION [None]
  - CONVULSION [None]
  - ENCEPHALOPATHY [None]
  - ESCHAR [None]
  - IMMUNOSUPPRESSANT DRUG LEVEL DECREASED [None]
  - IMPLANT SITE INFECTION [None]
  - LOSS OF CONSCIOUSNESS [None]
  - RESPIRATORY DISORDER [None]
